FAERS Safety Report 20589007 (Version 1)
Quarter: 2022Q1

REPORT INFORMATION
  Report Type: Spontaneous
  Country: US (occurrence: US)
  Receive Date: 20220314
  Receipt Date: 20220314
  Transmission Date: 20220423
  Serious: Yes (Life-Threatening, Hospitalization, Other)
  Sender: FDA-Public Use
  Company Number: US-EPICPHARMA-US-2022EPCLIT00158

PATIENT
  Age: 12 Year
  Sex: Female

DRUGS (1)
  1. AMLODIPINE [Suspect]
     Active Substance: AMLODIPINE BESYLATE
     Indication: Product used for unknown indication
     Route: 065

REACTIONS (4)
  - Acute respiratory distress syndrome [Recovered/Resolved]
  - Shock [Recovered/Resolved]
  - Overdose [Recovered/Resolved]
  - Leukocytosis [Recovered/Resolved]
